FAERS Safety Report 4297475-8 (Version None)
Quarter: 2004Q1

REPORT INFORMATION
  Report Type: 
  Country: None (occurrence: None)
  Receive Date: 20040218
  Receipt Date: 20030801
  Transmission Date: 20041129
  Serious: Yes (Other)
  Sender: FDA-Public Use
  Company Number: US-GLAXOSMITHKLINE-A0419929A

PATIENT
  Age: 40 Year
  Sex: Female

DRUGS (2)
  1. LOTRONEX [Suspect]
     Indication: IRRITABLE BOWEL SYNDROME
     Dosage: 1MG PER DAY
     Route: 048
     Dates: start: 20030701
  2. NO CONCURRENT MEDICATION [Concomitant]

REACTIONS (14)
  - ABDOMINAL PAIN UPPER [None]
  - ALOPECIA [None]
  - AMNESIA [None]
  - ASTHENIA [None]
  - BLINDNESS UNILATERAL [None]
  - DIFFICULTY IN WALKING [None]
  - HYPOAESTHESIA [None]
  - HYPOTRICHOSIS [None]
  - MICTURITION DISORDER [None]
  - MULTIPLE SCLEROSIS [None]
  - OLIGOMENORRHOEA [None]
  - PARAESTHESIA [None]
  - SPEECH DISORDER [None]
  - THINKING ABNORMAL [None]
